FAERS Safety Report 4409876-5 (Version None)
Quarter: 2004Q3

REPORT INFORMATION
  Report Type: 
  Country: None (occurrence: None)
  Receive Date: 20040726
  Receipt Date: 20040708
  Transmission Date: 20050211
  Serious: Yes (Hospitalization)
  Sender: FDA-Public Use
  Company Number: CH-JNJFOC-20040702973

PATIENT
  Age: 54 Year
  Sex: Female
  Weight: 72 kg

DRUGS (6)
  1. REMICADE [Suspect]
     Indication: RHEUMATOID ARTHRITIS
     Dosage: 1 IN 1 MONTH, INTRAVENOUS
     Route: 042
     Dates: start: 20031202, end: 20040419
  2. METHOTREXATE [Concomitant]
  3. SANDIMMUNE [Concomitant]
  4. FOLIC ACID [Concomitant]
  5. CALCIUM [Concomitant]
  6. PONSTEL [Concomitant]

REACTIONS (3)
  - ASTHENIA [None]
  - EPILEPSY [None]
  - MYOSITIS [None]
